FAERS Safety Report 20718073 (Version 1)
Quarter: 2022Q2

REPORT INFORMATION
  Report Type: Spontaneous
  Country: LK (occurrence: LK)
  Receive Date: 20220418
  Receipt Date: 20220418
  Transmission Date: 20220721
  Serious: Yes (Hospitalization, Other)
  Sender: FDA-Public Use
  Company Number: LK-AMGEN-LKASP2022063433

PATIENT
  Age: 23 Year
  Sex: Female

DRUGS (4)
  1. CINACALCET HYDROCHLORIDE [Suspect]
     Active Substance: CINACALCET HYDROCHLORIDE
     Indication: Hyperparathyroidism primary
     Dosage: 30 MILLIGRAM, QD
     Route: 065
  2. DEXTROSE [Concomitant]
     Active Substance: DEXTROSE
     Dosage: 100 MILLILITER/H  (20%)
  3. OCTREOTIDE ACETATE [Concomitant]
     Active Substance: OCTREOTIDE ACETATE
     Dosage: 100 MICROGRAM (6 HOURLY)
  4. ZOLEDRONIC ACID [Concomitant]
     Active Substance: ZOLEDRONIC ACID
     Dosage: 4 MILLIGRAM

REACTIONS (15)
  - Pneumonia [Unknown]
  - Vascular device infection [Unknown]
  - Urinary tract infection bacterial [Unknown]
  - Urinary tract infection fungal [Unknown]
  - Haemangioma of liver [Unknown]
  - Focal nodular hyperplasia [Unknown]
  - Pancreatic atrophy [Unknown]
  - Hypoglycaemic encephalopathy [Unknown]
  - Brain injury [Unknown]
  - Sepsis [Unknown]
  - Hypoglycaemia [Recovered/Resolved]
  - Pancreatitis acute [Unknown]
  - Multiple organ dysfunction syndrome [Unknown]
  - Acute respiratory distress syndrome [Unknown]
  - Gliosis [Unknown]
